FAERS Safety Report 11727945 (Version 2)
Quarter: 2015Q4

REPORT INFORMATION
  Report Type: Report from Study
  Country: JP (occurrence: JP)
  Receive Date: 20151112
  Receipt Date: 20151202
  Transmission Date: 20160304
  Serious: Yes (Hospitalization)
  Sender: FDA-Public Use
  Company Number: JP-INCYTE CORPORATION-2015IN005784

PATIENT
  Age: 45 Year
  Sex: Female

DRUGS (7)
  1. FUNGUARD [Concomitant]
     Active Substance: MICAFUNGIN SODIUM
     Indication: OPPORTUNISTIC INFECTION PROPHYLAXIS
     Dosage: 150 MG, UNK
     Route: 065
     Dates: start: 20150424, end: 20150625
  2. JAKAFI [Suspect]
     Active Substance: RUXOLITINIB
     Dosage: 15 UNK, UNK
     Route: 048
     Dates: start: 20150513
  3. JAKAFI [Suspect]
     Active Substance: RUXOLITINIB
     Indication: PRIMARY MYELOFIBROSIS
     Dosage: 5 MG, BID
     Route: 048
     Dates: start: 20150424, end: 20150512
  4. JAKAFI [Suspect]
     Active Substance: RUXOLITINIB
     Dosage: 5 MG, QD
     Route: 048
     Dates: start: 20150519, end: 20150531
  5. MEROPEN [Concomitant]
     Active Substance: MEROPENEM
     Indication: OPPORTUNISTIC INFECTION PROPHYLAXIS
     Dosage: 3 G, UNK
     Route: 065
     Dates: start: 20150424, end: 20150513
  6. JAKAFI [Suspect]
     Active Substance: RUXOLITINIB
     Dosage: 5 MG, QOD
     Route: 048
     Dates: start: 20150601, end: 20150706
  7. DENOSINE ^FAREAST^ [Concomitant]
     Indication: OPPORTUNISTIC INFECTION PROPHYLAXIS
     Dosage: 250 MG, UNK
     Route: 065
     Dates: start: 20150426, end: 20150508

REACTIONS (4)
  - Cytomegalovirus enterocolitis [Not Recovered/Not Resolved]
  - Cystitis haemorrhagic [Recovered/Resolved]
  - White blood cell count decreased [Recovered/Resolved]
  - Platelet count decreased [Recovered/Resolved]

NARRATIVE: CASE EVENT DATE: 20150510
